FAERS Safety Report 12312767 (Version 4)
Quarter: 2018Q2

REPORT INFORMATION
  Report Type: Report from Study
  Country: KR (occurrence: KR)
  Receive Date: 20160428
  Receipt Date: 20180526
  Transmission Date: 20180711
  Serious: Yes (Death, Hospitalization, Other)
  Sender: FDA-Public Use
  Company Number: KR-ROCHE-1748701

PATIENT
  Age: 54 Year
  Sex: Male

DRUGS (15)
  1. TOCILIZUMAB. [Suspect]
     Active Substance: TOCILIZUMAB
     Indication: RHEUMATOID ARTHRITIS
     Dosage: MOST RECENT DOSE ON 01/SEP/2015.
     Route: 042
     Dates: start: 20150414
  2. METHOTREXATE. [Concomitant]
     Active Substance: METHOTREXATE
     Indication: RHEUMATOID ARTHRITIS
     Route: 048
     Dates: start: 20150317, end: 20150607
  3. SULFASALAZINE. [Concomitant]
     Active Substance: SULFASALAZINE
     Indication: RHEUMATOID ARTHRITIS
     Route: 048
     Dates: start: 20140715
  4. NEUSTATIN [Concomitant]
     Indication: MICROVASCULAR CORONARY ARTERY DISEASE
     Route: 048
     Dates: start: 20141216
  5. ULTRACET [Concomitant]
     Active Substance: ACETAMINOPHEN\TRAMADOL HYDROCHLORIDE
     Indication: RHEUMATOID ARTHRITIS
     Dosage: REPORTER AS ULTRACET ER
     Route: 048
     Dates: start: 20141125
  6. FOLCID [Concomitant]
     Route: 048
     Dates: start: 20141111
  7. PARIET [Concomitant]
     Active Substance: RABEPRAZOLE SODIUM
     Route: 048
     Dates: start: 20150608, end: 20150622
  8. MUCOSTA [Concomitant]
     Active Substance: REBAMIPIDE
     Route: 048
     Dates: start: 20140603
  9. SOLONDO [Concomitant]
     Active Substance: PREDNISOLONE
     Indication: RHEUMATOID ARTHRITIS
     Dosage: 0.5 TAB
     Route: 048
     Dates: start: 20150317
  10. YUHAN-ZID [Concomitant]
     Route: 048
     Dates: start: 20141125
  11. CELEBREX [Concomitant]
     Active Substance: CELECOXIB
     Indication: RHEUMATOID ARTHRITIS
     Route: 065
     Dates: start: 20140715
  12. SOLONDO [Concomitant]
     Active Substance: PREDNISOLONE
     Indication: MOUTH ULCERATION
     Route: 048
     Dates: start: 20150506, end: 20150509
  13. SOLONDO [Concomitant]
     Active Substance: PREDNISOLONE
     Indication: MOUTH ULCERATION
     Route: 048
     Dates: start: 20150603, end: 20150606
  14. SOLONDO [Concomitant]
     Active Substance: PREDNISOLONE
     Indication: RHEUMATOID ARTHRITIS
     Dosage: 0.5TAB
     Route: 048
     Dates: start: 20150317
  15. HERBEN [Concomitant]
     Active Substance: DILTIAZEM HYDROCHLORIDE
     Indication: MICROVASCULAR CORONARY ARTERY DISEASE
     Route: 048
     Dates: start: 20150402

REACTIONS (6)
  - Myocardial infarction [Fatal]
  - Cardiac failure [Unknown]
  - Cardiac amyloidosis [Unknown]
  - Renal disorder [Unknown]
  - Haematochezia [Not Recovered/Not Resolved]
  - Plasma cell myeloma [Fatal]

NARRATIVE: CASE EVENT DATE: 201509
